FAERS Safety Report 6537766-0 (Version None)
Quarter: 2010Q1

REPORT INFORMATION
  Report Type: 
  Country: None (occurrence: None)
  Receive Date: 20100111
  Receipt Date: 20100106
  Transmission Date: 20100710
  Serious: Yes (Hospitalization, Other)
  Sender: FDA-Public Use
  Company Number: 2010SP001481

PATIENT
  Age: 45 Year
  Sex: Female

DRUGS (2)
  1. PEG-INTRON [Suspect]
     Indication: HEPATITIS C
     Dosage: 100 MCG; QW; SC
     Route: 058
     Dates: start: 20080301
  2. REBETOL [Suspect]
     Indication: HEPATITIS C
     Dosage: 800 MCG; QD; PO
     Route: 048
     Dates: start: 20080301

REACTIONS (4)
  - DIABETES MELLITUS [None]
  - RAYNAUD'S PHENOMENON [None]
  - RHEUMATOID ARTHRITIS [None]
  - SCLERODERMA [None]
